FAERS Safety Report 16367957 (Version 1)
Quarter: 2019Q2

REPORT INFORMATION
  Report Type: Report from Study
  Country: ID (occurrence: ID)
  Receive Date: 20190529
  Receipt Date: 20190529
  Transmission Date: 20190711
  Serious: Yes (Hospitalization, Other)
  Sender: FDA-Public Use
  Company Number: ID-BAYER-2018-095392

PATIENT
  Age: 75 Year
  Sex: Male

DRUGS (2)
  1. ANTACID C [Concomitant]
     Active Substance: MAGNESIUM OXIDE\SODIUM BICARBONATE
  2. NEXAVAR [Suspect]
     Active Substance: SORAFENIB
     Indication: HEPATOCELLULAR CARCINOMA
     Dosage: 400 MG DAILY DOSE (2 X 200 MG DAILY)
     Route: 048
     Dates: start: 20180418, end: 201902

REACTIONS (15)
  - Ascites [Not Recovered/Not Resolved]
  - Alpha 1 foetoprotein increased [Not Recovered/Not Resolved]
  - Diarrhoea [Not Recovered/Not Resolved]
  - Asthenia [Not Recovered/Not Resolved]
  - Haemoglobin decreased [Recovering/Resolving]
  - Alanine aminotransferase increased [Not Recovered/Not Resolved]
  - Fatigue [Not Recovered/Not Resolved]
  - Diarrhoea [None]
  - Diarrhoea [None]
  - Influenza [None]
  - Aspartate aminotransferase increased [Not Recovered/Not Resolved]
  - Abdominal distension [Not Recovered/Not Resolved]
  - Red blood cell sedimentation rate increased [Not Recovered/Not Resolved]
  - Abdominal pain upper [Not Recovered/Not Resolved]
  - Frequent bowel movements [Not Recovered/Not Resolved]

NARRATIVE: CASE EVENT DATE: 20180427
